FAERS Safety Report 4281793-3 (Version None)
Quarter: 2004Q1

REPORT INFORMATION
  Report Type: 
  Country: None (occurrence: None)
  Receive Date: 20040128
  Receipt Date: 20040122
  Transmission Date: 20041129
  Serious: Yes (Other)
  Sender: FDA-Public Use
  Company Number: GBWYE536626JAN04

PATIENT
  Age: 33 Year
  Sex: Female

DRUGS (1)
  1. EFFEXOR [Suspect]
     Indication: DEPRESSION

REACTIONS (2)
  - DRUG INTERACTION [None]
  - UNINTENDED PREGNANCY [None]
